FAERS Safety Report 4419560-X (Version None)
Quarter: 2004Q3

REPORT INFORMATION
  Report Type: 
  Country: None (occurrence: None)
  Receive Date: 20040809
  Receipt Date: 20040216
  Transmission Date: 20050211
  Serious: No
  Sender: FDA-Public Use
  Company Number: US-GLAXOSMITHKLINE-A0498358A

PATIENT
  Age: 27 Year
  Sex: Male

DRUGS (1)
  1. PAXIL [Suspect]
     Indication: MIGRAINE
     Dosage: 40MG PER DAY
     Route: 048

REACTIONS (5)
  - ABNORMAL DREAMS [None]
  - AGGRESSION [None]
  - DRUG WITHDRAWAL SYNDROME [None]
  - INFLUENZA [None]
  - SLEEP DISORDER [None]
